FAERS Safety Report 16855516 (Version 1)
Quarter: 2019Q3

REPORT INFORMATION
  Report Type: Spontaneous
  Country: US (occurrence: IN)
  Receive Date: 20190926
  Receipt Date: 20190926
  Transmission Date: 20191005
  Serious: Yes (Hospitalization, Other)
  Sender: FDA-Public Use
  Company Number: US-009507513-1909IND012727

PATIENT
  Age: 60 Year
  Sex: Male

DRUGS (2)
  1. AMPHOTERICIN B. [Suspect]
     Active Substance: AMPHOTERICIN B
     Indication: MUCORMYCOSIS
     Dosage: UNK
     Dates: start: 20190906
  2. NOXAFIL [Suspect]
     Active Substance: POSACONAZOLE
     Indication: MUCORMYCOSIS
     Dosage: UNK
     Route: 048
     Dates: start: 20190906

REACTIONS (2)
  - Mucormycosis [Not Recovered/Not Resolved]
  - Drug ineffective [Unknown]

NARRATIVE: CASE EVENT DATE: 201909
